FAERS Safety Report 22330819 (Version 2)
Quarter: 2023Q2

REPORT INFORMATION
  Report Type: Spontaneous
  Country: US (occurrence: None)
  Receive Date: 20230517
  Receipt Date: 20230605
  Transmission Date: 20230722
  Serious: No
  Sender: FDA-Public Use
  Company Number: 2023A104036

PATIENT
  Sex: Female

DRUGS (2)
  1. PULMICORT FLEXHALER [Suspect]
     Active Substance: BUDESONIDE
     Indication: Asthma
     Route: 055
     Dates: start: 202206
  2. PULMICORT FLEXHALER [Suspect]
     Active Substance: BUDESONIDE
     Indication: Asthma
     Dosage: 90?G/D90.0UG AS REQUIRED
     Route: 055

REACTIONS (5)
  - Nervousness [Unknown]
  - Asthma [Unknown]
  - Intentional product use issue [Unknown]
  - Off label use [Unknown]
  - Device delivery system issue [Unknown]
